FAERS Safety Report 9174762 (Version 2)
Quarter: 2013Q2

REPORT INFORMATION
  Report Type: Spontaneous
  Country: NL (occurrence: NL)
  Receive Date: 20130320
  Receipt Date: 20130405
  Transmission Date: 20140414
  Serious: Yes (Hospitalization, Other)
  Sender: FDA-Public Use
  Company Number: NL-ASTRAZENECA-2013SE17709

PATIENT
  Age: 24225 Day
  Sex: Female

DRUGS (11)
  1. SEROQUEL XR [Suspect]
     Indication: MENTAL DISORDER
     Route: 048
  2. SEROQUEL XR [Suspect]
     Indication: MENTAL DISORDER
     Route: 048
  3. METFORMIN [Concomitant]
     Dosage: 1000, 2 DOSAGE, DAILY
  4. ATORVASTATIN [Concomitant]
     Dosage: 40, 1 DOSAGE, DAILY
  5. PERINDOPRIL [Concomitant]
     Dosage: 10, 1 DOSAGE, DAILY
  6. AMLODIPINE [Concomitant]
     Dosage: 10, 1 DOSAGE, DAILY
  7. CLOPIDOGREL [Concomitant]
     Dosage: 75, 1 DOSAGE, DAILY
  8. PANTOSOL [Concomitant]
     Dosage: 40, 1 DOSAGE, DAILY
  9. LACTULOSE [Concomitant]
  10. SELOKEN ZOC [Concomitant]
     Dosage: 50+100, 1 DOSAGE, DAILY
     Route: 048
     Dates: start: 20130220
  11. LORAZEPAM [Concomitant]

REACTIONS (5)
  - Respiratory depression [Recovered/Resolved]
  - Adverse drug reaction [Unknown]
  - Hyperventilation [Recovered/Resolved]
  - Oxygen saturation decreased [Recovered/Resolved]
  - Dyspnoea [Recovered/Resolved]
